FAERS Safety Report 10688336 (Version 2)
Quarter: 2015Q1

REPORT INFORMATION
  Report Type: Spontaneous
  Country: US (occurrence: US)
  Receive Date: 20150102
  Receipt Date: 20150327
  Transmission Date: 20150720
  Serious: Yes (Congenital Anomaly, Other)
  Sender: FDA-Public Use
  Company Number: US-PFIZER INC-2014361943

PATIENT
  Sex: Female

DRUGS (32)
  1. NECON [Concomitant]
     Active Substance: ETHINYL ESTRADIOL\NORETHINDRONE
     Dosage: UNK
     Route: 064
     Dates: start: 20040323
  2. VIVELLE [Concomitant]
     Active Substance: ESTRADIOL
     Dosage: UNK
     Route: 064
     Dates: start: 20040415
  3. ANALPRAM-HC [Concomitant]
     Dosage: UNK
     Route: 064
     Dates: start: 20040108
  4. NOVAREL [Concomitant]
     Active Substance: CHORIOGONADOTROPIN ALFA
     Dosage: UNK
     Route: 064
     Dates: start: 20040126
  5. LORAZEPAM. [Concomitant]
     Active Substance: LORAZEPAM
     Dosage: 0.5 MG, UNK
     Route: 064
     Dates: start: 20040315
  6. BIAXIN [Concomitant]
     Active Substance: CLARITHROMYCIN
     Dosage: 500 MG, UNK
     Route: 064
     Dates: start: 20040629
  7. VANIQA [Concomitant]
     Active Substance: EFLORNITHINE HYDROCHLORIDE
     Dosage: UNK
     Route: 064
     Dates: start: 20040630
  8. FINACEA [Concomitant]
     Active Substance: AZELAIC ACID
     Dosage: UNK
     Route: 064
     Dates: start: 20040630
  9. FLUCONAZOLE. [Concomitant]
     Active Substance: FLUCONAZOLE
     Dosage: 150 MG, UNK
     Route: 064
     Dates: start: 20040804
  10. PHENAZOPYRIDINE HYDROCHLORIDE. [Concomitant]
     Active Substance: PHENAZOPYRIDINE HYDROCHLORIDE
     Dosage: 200 MG, UNK
     Route: 064
     Dates: start: 20040415
  11. VIOXX [Concomitant]
     Active Substance: ROFECOXIB
     Dosage: 25 MG, UNK
     Route: 064
     Dates: start: 20040126
  12. DIAZEPAM. [Concomitant]
     Active Substance: DIAZEPAM
     Dosage: 5 MG, UNK
     Route: 064
     Dates: start: 20040622
  13. NITROFURANTOIN. [Concomitant]
     Active Substance: NITROFURANTOIN
     Dosage: 100 MG, UNK
     Route: 064
     Dates: start: 20040419
  14. BEXTRA [Concomitant]
     Active Substance: VALDECOXIB
     Dosage: 20 MG, UNK
     Route: 064
     Dates: start: 20040923
  15. LEUPRORELIN [Concomitant]
     Active Substance: LEUPROLIDE ACETATE
     Dosage: 1 MG, UNK
     Route: 064
     Dates: start: 20040415
  16. PROGESTERONE. [Concomitant]
     Active Substance: PROGESTERONE
     Dosage: UNK
     Route: 064
     Dates: start: 20040415
  17. CLOMIPHENE [Concomitant]
     Active Substance: CLOMIPHENE
     Dosage: 50 MG, UNK
     Route: 064
     Dates: start: 20040108
  18. ZITHROMAX [Concomitant]
     Active Substance: AZITHROMYCIN DIHYDRATE
     Dosage: 250 MG, UNK
     Route: 064
     Dates: start: 20040505
  19. CARISOPRODOL. [Concomitant]
     Active Substance: CARISOPRODOL
     Dosage: 350 MG, UNK
     Route: 064
     Dates: start: 20040923
  20. ZOLOFT [Suspect]
     Active Substance: SERTRALINE HYDROCHLORIDE
     Indication: DEPRESSION
     Dosage: 100 MG, UNK
     Route: 064
     Dates: start: 20040830
  21. DIAZEPAM. [Concomitant]
     Active Substance: DIAZEPAM
     Dosage: 2 MG, UNK
     Route: 064
     Dates: start: 20040408
  22. METHYLPREDNISOLONE. [Concomitant]
     Active Substance: METHYLPREDNISOLONE
     Dosage: 4 MG, UNK
     Route: 064
     Dates: start: 20040415
  23. CYCLOBENZAPRINE [Concomitant]
     Active Substance: CYCLOBENZAPRINE
     Dosage: 10 MG, UNK
     Route: 064
     Dates: start: 20040512
  24. APRI [Concomitant]
     Active Substance: DESOGESTREL\ETHINYL ESTRADIOL
     Dosage: UNK
     Route: 064
     Dates: start: 20040729
  25. DOXYCYCLINE. [Concomitant]
     Active Substance: DOXYCYCLINE
     Dosage: UNK
     Route: 064
     Dates: start: 20030916
  26. SULFAMETHOXAZOLE/TRIMETHOPRIM [Concomitant]
     Dosage: UNK
     Route: 064
     Dates: start: 20030921
  27. DIFLUCAN [Concomitant]
     Active Substance: FLUCONAZOLE
     Dosage: UNK
     Route: 064
     Dates: start: 20031021
  28. CEPHALEXIN. [Concomitant]
     Active Substance: CEPHALEXIN
     Dosage: 500 MG, UNK
     Route: 064
     Dates: start: 20031119
  29. NASACORT [Concomitant]
     Active Substance: TRIAMCINOLONE ACETONIDE
     Dosage: UNK
     Route: 064
     Dates: start: 20040622
  30. TRIAZ [Concomitant]
     Active Substance: BENZOYL PEROXIDE
     Dosage: UNK
     Route: 064
     Dates: start: 20040630
  31. FLEXERIL [Concomitant]
     Active Substance: CYCLOBENZAPRINE HYDROCHLORIDE
     Dosage: 5 MG, UNK
     Route: 064
     Dates: start: 20040807
  32. AUGMENTIN XR [Concomitant]
     Active Substance: AMOXICILLIN\CLAVULANATE POTASSIUM
     Dosage: UNK
     Route: 064
     Dates: start: 20040929

REACTIONS (7)
  - Ventricular septal defect [Unknown]
  - Congenital anomaly [Unknown]
  - Coarctation of the aorta [Unknown]
  - Maternal exposure during pregnancy [Unknown]
  - Patent ductus arteriosus [Unknown]
  - Atrial septal defect [Unknown]
  - Premature baby [Unknown]

NARRATIVE: CASE EVENT DATE: 20050427
